FAERS Safety Report 5805721-1 (Version None)
Quarter: 2008Q3

REPORT INFORMATION
  Report Type: 
  Country: None (occurrence: None)
  Receive Date: 20080708
  Receipt Date: 20080708
  Transmission Date: 20090109
  Serious: No
  Sender: FDA-Public Use
  Company Number: None

PATIENT
  Age: 36 Year
  Sex: Female
  Weight: 81.6475 kg

DRUGS (2)
  1. ZOLADEX [Suspect]
     Indication: UTERINE LEIOMYOMA
     Dosage: 10.8 MG  1 SHOT  IM; 3.6 MG  1 SHOT  IM
     Route: 030
     Dates: start: 20070209, end: 20070508
  2. ZOLADEX [Suspect]
     Indication: UTERINE LEIOMYOMA
     Dosage: 10.8 MG  1 SHOT  IM; 3.6 MG  1 SHOT  IM
     Route: 030
     Dates: start: 20070509, end: 20070709

REACTIONS (6)
  - ASCITES [None]
  - HEPATIC CIRRHOSIS [None]
  - HEPATIC FIBROSIS [None]
  - LIVER INJURY [None]
  - MUSCULOSKELETAL CHEST PAIN [None]
  - PORTAL VEIN THROMBOSIS [None]
